FAERS Safety Report 12918860 (Version 2)
Quarter: 2017Q1

REPORT INFORMATION
  Report Type: Report from Study
  Country: BR (occurrence: BR)
  Receive Date: 20161108
  Receipt Date: 20170127
  Transmission Date: 20170428
  Serious: Yes (Hospitalization, Other)
  Sender: FDA-Public Use
  Company Number: PHHY2016BR152127

PATIENT
  Sex: Male
  Weight: 72 kg

DRUGS (1)
  1. DIOVAN AMLO FIX [Suspect]
     Active Substance: AMLODIPINE\VALSARTAN
     Indication: HYPERTENSION
     Dosage: 1 DF (AMLODIPINE 5 MG, VALSARTAN 80 MG), QD
     Route: 048

REACTIONS (9)
  - Headache [Recovering/Resolving]
  - Emphysema [Recovering/Resolving]
  - Concomitant disease aggravated [Recovering/Resolving]
  - Lung infection [Recovering/Resolving]
  - Respiratory disorder [Recovering/Resolving]
  - Chest pain [Recovering/Resolving]
  - Dyspnoea [Recovering/Resolving]
  - Loss of consciousness [Recovering/Resolving]
  - Lung disorder [Recovering/Resolving]
